FAERS Safety Report 8578082-5 (Version None)
Quarter: 2012Q3

REPORT INFORMATION
  Report Type: 
  Country: None (occurrence: None)
  Receive Date: 20120808
  Receipt Date: 20120806
  Transmission Date: 20120928
  Serious: Yes (Hospitalization, Other)
  Sender: FDA-Public Use
  Company Number: PHEH2006US01242

PATIENT
  Sex: Female
  Weight: 59.864 kg

DRUGS (59)
  1. ZELNORM                                 /USA/ [Concomitant]
     Indication: IRRITABLE BOWEL SYNDROME
  2. BEVACIZUMAB [Concomitant]
  3. MARIJUANA [Concomitant]
  4. ZELNORM                                 /CAN/ [Concomitant]
  5. ABILIFY [Concomitant]
  6. SPIRIVA [Concomitant]
  7. SINEQUAN [Concomitant]
  8. SINGULAIR [Concomitant]
  9. FASLODEX [Concomitant]
     Dosage: 5 ML, QMO
     Route: 030
  10. ATIVAN [Concomitant]
  11. ACYCLOVIR [Concomitant]
  12. MONTELUKAST [Concomitant]
  13. METOCLOPRAMIDE [Concomitant]
  14. MARINOL [Concomitant]
  15. LEVOTHYROXINE SODIUM [Concomitant]
  16. PREDNISOLONE [Concomitant]
  17. TEMAZEPAM [Concomitant]
  18. ACIDOPHILUS ^ZYMA^ [Concomitant]
  19. ZYRTEC [Concomitant]
  20. DRONABINOL [Concomitant]
  21. MOTRIN [Concomitant]
  22. FEMARA [Concomitant]
     Indication: BREAST CANCER METASTATIC
     Dates: start: 20020801
  23. LEXAPRO [Concomitant]
  24. WELLBUTRIN XL [Concomitant]
  25. SIMVASTATIN [Concomitant]
  26. PROVIGIL [Concomitant]
  27. PANTOPRAZOLE [Concomitant]
  28. AVASTIN [Concomitant]
  29. LUNESTA [Concomitant]
  30. CELEXA [Concomitant]
  31. SYNTHROID [Concomitant]
  32. CONCERTA [Concomitant]
  33. QVAR 40 [Concomitant]
  34. PAXIL [Concomitant]
  35. VALTREX [Concomitant]
  36. AMBIEN [Concomitant]
  37. PROZAC [Concomitant]
  38. ASPIRIN [Concomitant]
  39. MYCOLOG [Concomitant]
  40. BENADRYL ^PFIZER WARNER-LAMBERT^ [Concomitant]
  41. DOXYCYCLINE HCL [Concomitant]
  42. CORTISONE ACETATE [Concomitant]
  43. TAMOXIFEN CITRATE [Concomitant]
  44. LEVOXYL [Concomitant]
  45. KEFLEX [Concomitant]
  46. RADIATION THERAPY [Concomitant]
  47. BECLOMETHASONE AQUEOUS [Concomitant]
  48. ACIPHEX [Concomitant]
  49. LORAZEPAM [Concomitant]
  50. TETRACYCLINE [Concomitant]
  51. GABAPENTIN [Concomitant]
  52. ZOMETA [Suspect]
     Indication: BREAST CANCER METASTATIC
     Dosage: 4 MG, QMO
     Dates: start: 20020801, end: 20051001
  53. ARMODAFINIL [Concomitant]
  54. NASACORT [Concomitant]
  55. AZITHROMYCIN [Concomitant]
  56. PHENAZOPYRIDINE HCL TAB [Concomitant]
  57. ESTRING [Concomitant]
  58. REGLAN [Concomitant]
  59. PRILOSEC [Concomitant]

REACTIONS (58)
  - HYPOTHYROIDISM [None]
  - KNEE OPERATION [None]
  - DYSPEPSIA [None]
  - DERMAL CYST [None]
  - INSOMNIA [None]
  - ANTINUCLEAR ANTIBODY POSITIVE [None]
  - LIBIDO DECREASED [None]
  - PAPILLOMA [None]
  - ABSCESS [None]
  - METASTASES TO BONE [None]
  - LUNG NEOPLASM MALIGNANT [None]
  - EUSTACHIAN TUBE DISORDER [None]
  - HYPERLIPIDAEMIA [None]
  - DEPRESSION [None]
  - BRONCHITIS [None]
  - THYROID DISORDER [None]
  - CHILLS [None]
  - KERATOMILEUSIS [None]
  - IRRITABLE BOWEL SYNDROME [None]
  - OSTEONECROSIS [None]
  - BONE SCAN [None]
  - ABDOMINAL PAIN UPPER [None]
  - HERPES SIMPLEX [None]
  - CHEST PAIN [None]
  - VULVOVAGINAL DRYNESS [None]
  - RHINITIS [None]
  - BACK PAIN [None]
  - NODULE [None]
  - URINARY INCONTINENCE [None]
  - DYSURIA [None]
  - BLOOD CHOLESTEROL INCREASED [None]
  - OSTEONECROSIS OF JAW [None]
  - CONSTIPATION [None]
  - HIATUS HERNIA [None]
  - MENINGITIS [None]
  - NAUSEA [None]
  - GASTROOESOPHAGEAL REFLUX DISEASE [None]
  - SLEEP DISORDER [None]
  - CYSTITIS NONINFECTIVE [None]
  - STRESS [None]
  - PSYCHOTHERAPY [None]
  - INTERNATIONAL NORMALISED RATIO [None]
  - VULVOVAGINAL MYCOTIC INFECTION [None]
  - DISCOMFORT [None]
  - BRONCHOSPASM [None]
  - CERVICAL POLYP [None]
  - COLONOSCOPY [None]
  - BRONCHITIS CHRONIC [None]
  - PAIN IN EXTREMITY [None]
  - EAR CONGESTION [None]
  - FRACTURE [None]
  - BLOOD THYROID STIMULATING HORMONE [None]
  - METASTASIS [None]
  - EYE PRURITUS [None]
  - SUICIDAL IDEATION [None]
  - URINARY TRACT INFECTION [None]
  - CHRONIC OBSTRUCTIVE PULMONARY DISEASE [None]
  - ANXIETY [None]
